FAERS Safety Report 4770195-9 (Version None)
Quarter: 2005Q3

REPORT INFORMATION
  Report Type: 
  Country: None (occurrence: None)
  Receive Date: 20050915
  Receipt Date: 20050905
  Transmission Date: 20060218
  Serious: Yes (Death)
  Sender: FDA-Public Use
  Company Number: JP-JNJFOC-20050900707

PATIENT
  Age: 68 Year
  Sex: Male

DRUGS (1)
  1. TAVANIC [Suspect]
     Indication: PNEUMONIA
     Route: 048
     Dates: start: 20050309, end: 20050311

REACTIONS (1)
  - SUDDEN CARDIAC DEATH [None]
